FAERS Safety Report 8959952 (Version 3)
Quarter: 2013Q2

REPORT INFORMATION
  Report Type: Spontaneous
  Country: US (occurrence: US)
  Receive Date: 20121212
  Receipt Date: 20130508
  Transmission Date: 20140414
  Serious: Yes (Hospitalization, Other)
  Sender: FDA-Public Use
  Company Number: US-ASTRAZENECA-2012SE92032

PATIENT
  Age: 52 Year
  Sex: Male

DRUGS (3)
  1. SEROQUEL [Suspect]
     Route: 048
     Dates: start: 200301, end: 20030618
  2. SEROQUEL [Suspect]
     Dosage: 200 MG IN THE MORNING AND 400 MG AT BED TIME
     Route: 048
     Dates: start: 200303
  3. NEURONTIN [Concomitant]
     Dates: start: 200303

REACTIONS (9)
  - Diabetes mellitus [Unknown]
  - Diabetic coma [Unknown]
  - Diabetic ketoacidosis [Unknown]
  - Pancreatic cyst [Unknown]
  - Chronic obstructive pulmonary disease [Unknown]
  - Asthma [Unknown]
  - Tobacco user [Unknown]
  - Blood glucose increased [Unknown]
  - Blood glucose fluctuation [Unknown]
